FAERS Safety Report 9280474 (Version 1)
Quarter: 2013Q1

REPORT INFORMATION
  Report Type: Spontaneous
  Country: CA (occurrence: None)
  Receive Date: 20130219
  Receipt Date: 20130219
  Transmission Date: 20140127
  Serious: Yes (Other)
  Sender: FDA-Public Use
  Company Number: 220466

PATIENT
  Age: 28 Year
  Sex: Female

DRUGS (1)
  1. INNOHEP (TINZAPARIN SODIUM) [Suspect]
     Indication: ANTICOAGULANT THERAPY

REACTIONS (4)
  - Abortion spontaneous [None]
  - Off label use [None]
  - Maternal exposure during pregnancy [None]
  - Umbilical cord abnormality [None]
